FAERS Safety Report 7170397-0 (Version None)
Quarter: 2010Q4

REPORT INFORMATION
  Report Type: 
  Country: None (occurrence: None)
  Receive Date: 20101217
  Receipt Date: 20101208
  Transmission Date: 20110411
  Serious: No
  Sender: FDA-Public Use
  Company Number: A0892563A

PATIENT
  Age: 72 Year
  Sex: Male

DRUGS (4)
  1. PROMACTA [Suspect]
     Dosage: 1TAB PER DAY
     Route: 048
     Dates: start: 20100101
  2. METHOCARBAMOL [Concomitant]
  3. SENNA [Concomitant]
  4. THEOPHYLLINE [Concomitant]

REACTIONS (1)
  - PRURITUS [None]
